FAERS Safety Report 7750979-5 (Version None)
Quarter: 2011Q3

REPORT INFORMATION
  Report Type: 
  Country: None (occurrence: None)
  Receive Date: 20110914
  Receipt Date: 20110831
  Transmission Date: 20111222
  Serious: Yes (Hospitalization, Other)
  Sender: FDA-Public Use
  Company Number: PHHO2011ES13869

PATIENT
  Sex: Female
  Weight: 90 kg

DRUGS (10)
  1. ASPIRIN [Concomitant]
     Indication: ARRHYTHMIA
     Dosage: 100 MG, QD
     Route: 048
     Dates: start: 20091002
  2. BISOPROLOL FUMARATE [Concomitant]
     Indication: ARRHYTHMIA
     Dosage: 5 MG, QD
     Route: 048
     Dates: start: 20091002
  3. FLUOROURACIL [Suspect]
     Dosage: 898 MG, BID
     Route: 042
     Dates: start: 20110429
  4. HYDROCHLOROTHIAZIDE [Concomitant]
     Indication: HYPERTENSION
     Dosage: 50 MG, QD
     Route: 048
     Dates: start: 20091014
  5. CYCLOPHOSPHAMIDE [Suspect]
     Indication: BREAST CANCER
     Dosage: 898 MG, BID
     Route: 042
     Dates: start: 20110429
  6. METHOTREXATE [Suspect]
     Dosage: 59.8 MG, BID
     Route: 042
     Dates: start: 20110429
  7. NO TREATMENT RECEIVED [Suspect]
     Dosage: NO TREATMENT
  8. AMLODIPINE [Concomitant]
     Indication: HYPERTENSION
     Dosage: 10 MG, QD
     Route: 048
     Dates: start: 20071025
  9. OMEPRAZOLE [Concomitant]
     Indication: GASTRITIS PROPHYLAXIS
     Dosage: 20 MG, QD
     Route: 048
     Dates: start: 20071025
  10. LOSARTAN POTASSIUM [Concomitant]
     Indication: HYPERTENSION
     Dosage: 50 MG, QD
     Route: 048
     Dates: start: 20091002

REACTIONS (2)
  - FOLLICULITIS [None]
  - NEUTROPENIA [None]
